FAERS Safety Report 25555724 (Version 1)
Quarter: 2025Q3

REPORT INFORMATION
  Report Type: Spontaneous
  Country: US (occurrence: US)
  Receive Date: 20250715
  Receipt Date: 20250715
  Transmission Date: 20251021
  Serious: No
  Sender: SOLENO THERAPEUTICS
  Company Number: US-SOLENO THERAPEUTICS, INC.-SOL2025000069

PATIENT
  Sex: Female
  Weight: 58.503 kg

DRUGS (5)
  1. VYKAT XR [Suspect]
     Active Substance: DIAZOXIDE CHOLINE
     Indication: Prader-Willi syndrome
     Route: 065
     Dates: start: 202505
  2. TRAZODONE [Suspect]
     Active Substance: TRAZODONE HYDROCHLORIDE
     Indication: Insomnia
     Dates: start: 20250521
  3. MELATONIN [Suspect]
     Active Substance: MELATONIN
     Indication: Insomnia
  4. INTUNIV [Concomitant]
     Active Substance: GUANFACINE HYDROCHLORIDE
     Indication: Product used for unknown indication
  5. INVEGA [Concomitant]
     Active Substance: PALIPERIDONE
     Indication: Product used for unknown indication

REACTIONS (12)
  - Thinking abnormal [Unknown]
  - Nasal congestion [Unknown]
  - Insomnia [Not Recovered/Not Resolved]
  - Agitation [Unknown]
  - Logorrhoea [Unknown]
  - Somatic symptom disorder [Not Recovered/Not Resolved]
  - Facial pain [Unknown]
  - Formication [Unknown]
  - Mental status changes [Not Recovered/Not Resolved]
  - Abnormal behaviour [Not Recovered/Not Resolved]
  - Sensory overload [Not Recovered/Not Resolved]
  - Drug ineffective [Unknown]
